FAERS Safety Report 9122578 (Version 2)
Quarter: 2013Q1

REPORT INFORMATION
  Report Type: Spontaneous
  Country: US (occurrence: None)
  Receive Date: 20130131
  Receipt Date: 20130212
  Transmission Date: 20140127
  Serious: No
  Sender: FDA-Public Use
  Company Number: JPI-P-026213

PATIENT
  Age: 16 Year
  Sex: Female
  Weight: 71.22 kg

DRUGS (3)
  1. XYREM [Suspect]
     Indication: CATAPLEXY
     Route: 048
     Dates: start: 20120801
  2. GABAPENTN [Concomitant]
  3. THYROID MEDICATION [Concomitant]

REACTIONS (3)
  - Complex regional pain syndrome [None]
  - Thirst [None]
  - Dry throat [None]
